FAERS Safety Report 6297290-X (Version None)
Quarter: 2009Q3

REPORT INFORMATION
  Report Type: 
  Country: None (occurrence: None)
  Receive Date: 20090805
  Receipt Date: 20090804
  Transmission Date: 20100115
  Serious: Yes (Hospitalization)
  Sender: FDA-Public Use
  Company Number: CA-PFIZER INC-2009229761

PATIENT
  Age: 66 Year

DRUGS (9)
  1. NORVASC [Suspect]
     Dosage: 10 MG, 1X/DAY
     Dates: start: 20090501
  2. NORVASC [Suspect]
     Dosage: 7.5 MG, 1X/DAY
     Dates: start: 20070101, end: 20090501
  3. OLANZAPINE [Concomitant]
     Dosage: UNK
  4. DURAGESIC-100 [Concomitant]
     Dosage: UNK
  5. DOMPERIDONE [Concomitant]
     Dosage: UNK
  6. SYNTHROID [Concomitant]
     Dosage: UNK
  7. COLACE [Concomitant]
     Dosage: UNK
  8. NEXIUM [Concomitant]
     Dosage: UNK
  9. POTASSIUM [Concomitant]
     Dosage: 1 UNK, UNK

REACTIONS (1)
  - AKATHISIA [None]
